FAERS Safety Report 9754449 (Version 2)
Quarter: 2013Q4

REPORT INFORMATION
  Report Type: Spontaneous
  Country: US (occurrence: US)
  Receive Date: 20131213
  Receipt Date: 20131213
  Transmission Date: 20140711
  Serious: Yes (Disabling)
  Sender: FDA-Public Use
  Company Number: US-GE HEALTHCARE MEDICAL DIAGNOSTICS-OSCN-PR-1004S-0102

PATIENT
  Age: 51 Year
  Sex: Female

DRUGS (11)
  1. OMNISCAN [Suspect]
     Indication: PRODUCT USED FOR UNKNOWN INDICATION
     Dates: start: 20051209, end: 20051209
  2. OMNISCAN [Suspect]
     Dates: start: 20060511
  3. OMNISCAN [Suspect]
     Dates: start: 20060919
  4. OMNISCAN [Suspect]
     Dates: start: 20061116, end: 20061116
  5. GADOLINIUM (UNSPECIFIED) [Suspect]
     Indication: PRODUCT USED FOR UNKNOWN INDICATION
  6. GADOLINIUM (UNSPECIFIED) [Suspect]
     Indication: PRODUCT USED FOR UNKNOWN INDICATION
  7. GADOLINIUM (UNSPECIFIED) [Suspect]
     Indication: PRODUCT USED FOR UNKNOWN INDICATION
  8. GADOLINIUM (UNSPECIFIED) [Suspect]
     Indication: PRODUCT USED FOR UNKNOWN INDICATION
  9. GADOLINIUM (UNSPECIFIED) [Suspect]
     Indication: BACK PAIN
  10. MAGNEVIST [Suspect]
     Indication: BACK PAIN
     Dates: start: 20041014, end: 20041014
  11. MAGNEVIST [Suspect]
     Indication: PRODUCT USED FOR UNKNOWN INDICATION
     Dates: start: 20050628, end: 20050628

REACTIONS (1)
  - Nephrogenic systemic fibrosis [Not Recovered/Not Resolved]
